FAERS Safety Report 10101429 (Version 2)
Quarter: 2014Q2

REPORT INFORMATION
  Report Type: Spontaneous
  Country: JP (occurrence: JP)
  Receive Date: 20140424
  Receipt Date: 20140509
  Transmission Date: 20141212
  Serious: Yes (Other)
  Sender: FDA-Public Use
  Company Number: JP-RANBAXY-2014RR-80375

PATIENT
  Sex: Male

DRUGS (2)
  1. RISPERIDONE [Suspect]
     Indication: BIPOLAR DISORDER
     Dosage: 12 MG, DAILY
     Route: 065
  2. HALOPERIDOL [Suspect]
     Indication: BIPOLAR DISORDER
     Dosage: 9 MG, DAILY
     Route: 065

REACTIONS (3)
  - Substance-induced mood disorder [Recovering/Resolving]
  - Apathy [Recovering/Resolving]
  - Blunted affect [Recovering/Resolving]
